FAERS Safety Report 8579186-3 (Version None)
Quarter: 2012Q3

REPORT INFORMATION
  Report Type: 
  Country: None (occurrence: None)
  Receive Date: 20120808
  Receipt Date: 20120806
  Transmission Date: 20120928
  Serious: No
  Sender: FDA-Public Use
  Company Number: US-PFIZER INC-2012190753

PATIENT
  Age: 80 Year
  Sex: Female
  Weight: 73.469 kg

DRUGS (5)
  1. OXYBUTYNIN [Suspect]
     Indication: HYPERTONIC BLADDER
     Dosage: 5 MG, 2X/DAY
     Dates: start: 20120101, end: 20120101
  2. DETROL LA [Suspect]
     Indication: HYPERTONIC BLADDER
     Dosage: 4 MG, 1X/DAY
     Route: 048
     Dates: end: 20120101
  3. CITRACAL [Concomitant]
     Indication: MINERAL SUPPLEMENTATION
     Dosage: UNK
  4. SANCTURA XR [Suspect]
     Indication: HYPERTONIC BLADDER
     Dosage: 60 MG, DAILY
     Route: 048
     Dates: start: 20120101
  5. VITAMIN D [Concomitant]
     Dosage: UNK

REACTIONS (4)
  - DRUG INEFFECTIVE [None]
  - HYPERTONIC BLADDER [None]
  - FEELING JITTERY [None]
  - NOCTURIA [None]
